FAERS Safety Report 22166781 (Version 1)
Quarter: 2023Q2

REPORT INFORMATION
  Report Type: Spontaneous
  Country: PL (occurrence: PL)
  Receive Date: 20230403
  Receipt Date: 20230403
  Transmission Date: 20230722
  Serious: Yes (Death)
  Sender: FDA-Public Use
  Company Number: PL-PFIZER INC-PV202300059440

PATIENT
  Age: 27 Year
  Sex: Male

DRUGS (1)
  1. MYLOTARG [Suspect]
     Active Substance: GEMTUZUMAB OZOGAMICIN

REACTIONS (3)
  - Death [Fatal]
  - Diarrhoea [Unknown]
  - Blood bilirubin increased [Unknown]
